FAERS Safety Report 9382669 (Version 1)
Quarter: 2013Q3

REPORT INFORMATION
  Report Type: Report from Study
  Country: GB (occurrence: GB)
  Receive Date: 20130703
  Receipt Date: 20130703
  Transmission Date: 20140515
  Serious: Yes (Hospitalization)
  Sender: FDA-Public Use
  Company Number: GB-GLAXOSMITHKLINE-B0861983A

PATIENT
  Age: 70 Year
  Sex: Male
  Weight: 60.2 kg

DRUGS (3)
  1. PAZOPANIB [Suspect]
     Indication: METASTATIC RENAL CELL CARCINOMA
     Dosage: 800MG PER DAY
     Dates: start: 20121002, end: 20130107
  2. CODEINE [Concomitant]
     Indication: PAIN
     Dosage: 60MG PER DAY
     Route: 048
     Dates: start: 20121224
  3. PARACETAMOL [Concomitant]
     Indication: PAIN
     Dosage: 1G PER DAY
     Route: 048
     Dates: start: 20121224

REACTIONS (4)
  - Flank pain [Not Recovered/Not Resolved]
  - Anaemia [Not Recovered/Not Resolved]
  - Hypotension [Recovered/Resolved]
  - Confusional state [Recovered/Resolved]
